FAERS Safety Report 6179760-8 (Version None)
Quarter: 2009Q2

REPORT INFORMATION
  Report Type: 
  Country: None (occurrence: None)
  Receive Date: 20090505
  Receipt Date: 20090424
  Transmission Date: 20091009
  Serious: Yes (Hospitalization)
  Sender: FDA-Public Use
  Company Number: ES-ELI_LILLY_AND_COMPANY-ES200904006731

PATIENT
  Age: 78 Year
  Sex: Female

DRUGS (2)
  1. FORTEO [Suspect]
     Indication: OSTEOPOROSIS
     Dosage: 20 UG, UNK
     Route: 058
     Dates: start: 20071201, end: 20090401
  2. METHOTREXATE [Concomitant]
     Indication: ARTHRITIS

REACTIONS (5)
  - COUGH [None]
  - DEEP VEIN THROMBOSIS [None]
  - FATIGUE [None]
  - FEELING ABNORMAL [None]
  - PULMONARY EMBOLISM [None]
